FAERS Safety Report 10945216 (Version 1)
Quarter: 2015Q1

REPORT INFORMATION
  Report Type: Spontaneous
  Country: US (occurrence: None)
  Receive Date: 20150319
  Receipt Date: 20150319
  Transmission Date: 20150721
  Serious: Yes (Other)
  Sender: FDA-Public Use
  Company Number: COL_19344_2015

PATIENT
  Age: 35 Year
  Sex: Female

DRUGS (1)
  1. TOMS OF MAINE FRESH APRICOT DEODORANT [Suspect]
     Active Substance: COSMETICS
     Indication: PRODUCT USED FOR UNKNOWN INDICATION
     Dosage: A COUPLE OF SWIPES TO EACH UNDERARM
     Route: 061
     Dates: start: 201411, end: 201411

REACTIONS (1)
  - Staphylococcal infection [None]

NARRATIVE: CASE EVENT DATE: 201411
